FAERS Safety Report 5828043-1 (Version None)
Quarter: 2008Q3

REPORT INFORMATION
  Report Type: 
  Country: None (occurrence: None)
  Receive Date: 20080730
  Receipt Date: 20071011
  Transmission Date: 20090109
  Serious: No
  Sender: FDA-Public Use
  Company Number: A0687185A

PATIENT
  Sex: Female

DRUGS (3)
  1. ZANTAC [Suspect]
     Dosage: 150MG AS REQUIRED
     Route: 048
     Dates: start: 20020101
  2. CLARINEX [Concomitant]
  3. NASACORT [Concomitant]

REACTIONS (1)
  - NAUSEA [None]
